FAERS Safety Report 18574477 (Version 1)
Quarter: 2020Q4

REPORT INFORMATION
  Report Type: Spontaneous
  Country: GR (occurrence: GR)
  Receive Date: 20201203
  Receipt Date: 20201203
  Transmission Date: 20210114
  Serious: Yes (Other)
  Sender: FDA-Public Use
  Company Number: GR-PFIZER INC-2020469263

PATIENT
  Age: 50 Year
  Sex: Male

DRUGS (3)
  1. PACLITAXEL. [Suspect]
     Active Substance: PACLITAXEL
     Indication: PENILE CANCER
     Dosage: 175 MG/M2 ON DAY 1
  2. CISPLATIN. [Concomitant]
     Active Substance: CISPLATIN
     Indication: PENILE CANCER
     Dosage: 25 MG/M2 (FROM DAY 1 TO DAY 3)
  3. IFOSFAMIDE. [Concomitant]
     Active Substance: IFOSFAMIDE
     Indication: PENILE CANCER
     Dosage: 1200 MG/M2 (FROM DAY 1 TO DAY 3)

REACTIONS (1)
  - Interstitial lung disease [Recovered/Resolved]
